FAERS Safety Report 25160241 (Version 1)
Quarter: 2025Q2

REPORT INFORMATION
  Report Type: Spontaneous
  Country: US (occurrence: None)
  Receive Date: 20250403
  Receipt Date: 20250403
  Transmission Date: 20250716
  Serious: Yes (Death)
  Sender: FDA-CTU
  Company Number: None

PATIENT
  Sex: Female

DRUGS (1)
  1. PHOSPHOLINE IODIDE OPHTHALMIC [Suspect]
     Active Substance: ECHOTHIOPHATE IODIDE
     Route: 047
     Dates: start: 20240822

REACTIONS (1)
  - Death [None]
